FAERS Safety Report 20532905 (Version 1)
Quarter: 2022Q1

REPORT INFORMATION
  Report Type: Report from Study
  Country: MX (occurrence: MX)
  Receive Date: 20220301
  Receipt Date: 20220301
  Transmission Date: 20220424
  Serious: Yes (Hospitalization)
  Sender: FDA-Public Use
  Company Number: MX-PFIZER INC-202200181532

PATIENT
  Age: 47 Year
  Sex: Female
  Weight: 73.1 kg

DRUGS (4)
  1. NIRMATRELVIR [Suspect]
     Active Substance: NIRMATRELVIR
     Indication: COVID-19
     Dosage: Q12H FOR 10 DAYS
     Route: 048
     Dates: start: 20220115, end: 20220124
  2. PLACEBO [Suspect]
     Active Substance: UNSPECIFIED INGREDIENT
     Indication: COVID-19
     Dosage: Q12H FOR 10 DAYS
     Route: 048
     Dates: start: 20220115, end: 20220124
  3. PLACEBO [Suspect]
     Active Substance: UNSPECIFIED INGREDIENT
     Indication: COVID-19
     Dosage: Q12H FOR 10 DAYS
     Route: 048
     Dates: start: 20220115, end: 20220124
  4. RITONAVIR [Suspect]
     Active Substance: RITONAVIR
     Indication: COVID-19
     Dosage: Q12H FOR 10 DAYS
     Route: 048
     Dates: start: 20220115, end: 20220124

REACTIONS (1)
  - Cholecystitis acute [Recovered/Resolved]

NARRATIVE: CASE EVENT DATE: 20220128
